FAERS Safety Report 9388316 (Version 4)
Quarter: 2014Q1

REPORT INFORMATION
  Report Type: Spontaneous
  Country: US (occurrence: US)
  Receive Date: 20130708
  Receipt Date: 20140305
  Transmission Date: 20141002
  Serious: Yes (Other)
  Sender: FDA-Public Use
  Company Number: US-INCYTE CORPORATION-2013IN001423

PATIENT
  Age: 71 Year
  Sex: Male
  Weight: 91.8 kg

DRUGS (2)
  1. JAKAFI [Suspect]
     Indication: MYELOFIBROSIS
     Dosage: 10 MG, 2 BID
     Route: 048
     Dates: start: 201204, end: 20130601
  2. JAKAFI [Suspect]
     Indication: POLYCYTHAEMIA VERA

REACTIONS (3)
  - Chronic myeloid leukaemia [Recovering/Resolving]
  - Leukocytosis [Recovered/Resolved]
  - Thrombocytopenia [Recovering/Resolving]
